FAERS Safety Report 6775460-1 (Version None)
Quarter: 2010Q2

REPORT INFORMATION
  Report Type: 
  Country: None (occurrence: None)
  Receive Date: 20100617
  Receipt Date: 20100607
  Transmission Date: 20101027
  Serious: Yes (Hospitalization)
  Sender: FDA-Public Use
  Company Number: IT-PFIZER INC-2010070863

PATIENT
  Age: 16 Year
  Sex: Male

DRUGS (1)
  1. BASSADO [Suspect]
     Indication: CHLAMYDIAL INFECTION
     Dosage: 100 MG, TOTAL
     Route: 048
     Dates: start: 20100530, end: 20100530

REACTIONS (4)
  - DYSPHAGIA [None]
  - DYSPNOEA [None]
  - LARYNGEAL OEDEMA [None]
  - MUSCULOSKELETAL PAIN [None]
